FAERS Safety Report 15952279 (Version 1)
Quarter: 2019Q1

REPORT INFORMATION
  Report Type: Spontaneous
  Country: US (occurrence: US)
  Receive Date: 20190212
  Receipt Date: 20190212
  Transmission Date: 20190417
  Serious: No
  Sender: FDA-Public Use
  Company Number: US-PFIZER INC-2019062702

PATIENT
  Age: 44 Year
  Sex: Male

DRUGS (2)
  1. INLYTA [Suspect]
     Active Substance: AXITINIB
     Indication: METASTASES TO BONE
  2. INLYTA [Suspect]
     Active Substance: AXITINIB
     Indication: RENAL CANCER
     Dosage: 5 MG, UNK

REACTIONS (6)
  - Infection [Unknown]
  - Inflammation [Unknown]
  - Rash [Unknown]
  - Transaminases increased [Unknown]
  - Diarrhoea [Unknown]
  - Pneumonitis [Unknown]
